FAERS Safety Report 10098118 (Version 1)
Quarter: 2014Q2

REPORT INFORMATION
  Report Type: Spontaneous
  Country: GB (occurrence: None)
  Receive Date: 20140421
  Receipt Date: 20140421
  Transmission Date: 20141212
  Serious: Yes (Hospitalization, Other)
  Sender: FDA-Public Use
  Company Number: 2014-001046

PATIENT
  Age: 78 Year
  Sex: Female
  Weight: 80 kg

DRUGS (6)
  1. DORYX [Suspect]
     Indication: RESPIRATORY TRACT INFECTION
     Route: 048
     Dates: start: 20140122, end: 20140205
  2. BUPRENORPHINE HYDROCHLORIDE (BUPRENORPHINE HYDROCHLORIDE) [Concomitant]
  3. MOMETASONE (MOMETASONE ) [Concomitant]
  4. OMEPRAZOL (OMEPRAZOLE) [Concomitant]
  5. PROXICAM (PROXICAM) [Concomitant]
  6. CO-AMOXICLAV (AMOXICILLIN SODIUM, CLAVULANATE POTASSIUM) [Concomitant]

REACTIONS (3)
  - Drug-induced liver injury [None]
  - Drug-induced liver injury [None]
  - Pruritus [None]
